FAERS Safety Report 9191758 (Version 10)
Quarter: 2013Q3

REPORT INFORMATION
  Report Type: Spontaneous
  Country: US (occurrence: US)
  Receive Date: 20130326
  Receipt Date: 20130704
  Transmission Date: 20140515
  Serious: No
  Sender: FDA-Public Use
  Company Number: US-009507513-1303USA010944

PATIENT
  Sex: Female

DRUGS (1)
  1. IMPLANON [Suspect]
     Dosage: 1 ROD, UNK
     Route: 059
     Dates: start: 2010

REACTIONS (5)
  - Myalgia [Not Recovered/Not Resolved]
  - Medical device complication [Unknown]
  - Complication of device removal [Unknown]
  - Device deployment issue [Unknown]
  - Medical device complication [Unknown]
